FAERS Safety Report 8500934-2 (Version None)
Quarter: 2012Q3

REPORT INFORMATION
  Report Type: 
  Country: None (occurrence: None)
  Receive Date: 20120710
  Receipt Date: 20120626
  Transmission Date: 20120928
  Serious: Yes (Hospitalization)
  Sender: FDA-Public Use
  Company Number: FR-ROCHE-683703

PATIENT
  Sex: Female
  Weight: 63 kg

DRUGS (6)
  1. ARAVA [Concomitant]
     Indication: RHEUMATOID ARTHRITIS
     Route: 048
  2. FOSAMAX [Concomitant]
     Dates: start: 19981101, end: 20080101
  3. PREDNISONE TAB [Suspect]
     Indication: RHEUMATOID ARTHRITIS
     Route: 048
  4. CALCIUM CARBONATE [Concomitant]
     Indication: OSTEOPOROSIS
     Dosage: DRUG NAME:OROCAL VIT D3
     Route: 048
  5. REMICADE [Concomitant]
     Indication: RHEUMATOID ARTHRITIS
  6. MABTHERA [Suspect]
     Indication: RHEUMATOID ARTHRITIS
     Dosage: RECEIVED 3 CYCLES
     Route: 042
     Dates: start: 20060301, end: 20081119

REACTIONS (1)
  - HEPATIC ECHINOCOCCIASIS [None]
